FAERS Safety Report 7880349-0 (Version None)
Quarter: 2011Q4

REPORT INFORMATION
  Report Type: 
  Country: None (occurrence: None)
  Receive Date: 20111101
  Receipt Date: 20111026
  Transmission Date: 20120403
  Serious: Yes (Hospitalization, Congenital Anomaly, Other)
  Sender: FDA-Public Use
  Company Number: US-PFIZER INC-2011160887

PATIENT
  Sex: Female
  Weight: 3 kg

DRUGS (3)
  1. FERROUS SULFATE [Concomitant]
     Dosage: 325 MG, 2X/DAY
     Route: 064
  2. MULTI-VITAMINS [Concomitant]
     Dosage: DAILY
     Route: 064
  3. ZOLOFT [Suspect]
     Dosage: 50 MG, 1X/DAY
     Route: 064
     Dates: start: 20061207

REACTIONS (18)
  - PULMONARY HYPERTENSION [None]
  - RIGHT ATRIAL DILATATION [None]
  - VENTRICULAR SEPTAL DEFECT [None]
  - PULMONARY OEDEMA [None]
  - VENTRICULAR HYPERTROPHY [None]
  - RIGHT VENTRICULAR DYSFUNCTION [None]
  - CARDIAC FAILURE CONGESTIVE [None]
  - LEFT VENTRICLE OUTFLOW TRACT OBSTRUCTION [None]
  - COARCTATION OF THE AORTA [None]
  - PNEUMOTHORAX [None]
  - PULMONARY ARTERY STENOSIS CONGENITAL [None]
  - BRONCHIOLITIS [None]
  - MATERNAL EXPOSURE DURING PREGNANCY [None]
  - ATRIAL SEPTAL DEFECT [None]
  - CARDIOMEGALY [None]
  - TRICUSPID VALVE INCOMPETENCE [None]
  - BLOOD GLUCOSE INCREASED [None]
  - ATELECTASIS NEONATAL [None]
